FAERS Safety Report 8854178 (Version 2)
Quarter: 2012Q4

REPORT INFORMATION
  Report Type: Report from Study
  Country: US (occurrence: US)
  Receive Date: 20121022
  Receipt Date: 20121107
  Transmission Date: 20130627
  Serious: Yes (Hospitalization)
  Sender: FDA-Public Use
  Company Number: US-JNJFOC-20121008660

PATIENT
  Age: 16 Year
  Sex: Male
  Weight: 55.2 kg

DRUGS (12)
  1. REMICADE [Suspect]
     Indication: CROHN^S DISEASE
     Route: 042
  2. REMICADE [Suspect]
     Indication: CROHN^S DISEASE
     Route: 042
     Dates: start: 20080812
  3. REMICADE [Suspect]
     Indication: CROHN^S DISEASE
     Route: 042
     Dates: start: 20080514
  4. REMICADE [Suspect]
     Indication: CROHN^S DISEASE
     Dosage: the last dose of infliximab prior to the event onset
     Route: 042
     Dates: start: 20120918
  5. REMICADE [Suspect]
     Indication: CROHN^S DISEASE
     Dosage: discontinued due to completed loss of efficacy
     Route: 042
     Dates: start: 20081112, end: 20081224
  6. METHOTREXATE [Concomitant]
  7. FOLIC ACID [Concomitant]
  8. VITAMIN D [Concomitant]
  9. MIRALAX [Concomitant]
  10. DOXYCYCLINE [Concomitant]
  11. ANTIHISTAMINES [Concomitant]
     Indication: PREMEDICATION
  12. ACETAMINOPHEN [Concomitant]
     Indication: PREMEDICATION

REACTIONS (1)
  - Crohn^s disease [Recovered/Resolved]
